FAERS Safety Report 8315221-5 (Version None)
Quarter: 2012Q2

REPORT INFORMATION
  Report Type: 
  Country: None (occurrence: None)
  Receive Date: 20120426
  Receipt Date: 20120419
  Transmission Date: 20120825
  Serious: No
  Sender: FDA-Public Use
  Company Number: JP-BRISTOL-MYERS SQUIBB COMPANY-16474363

PATIENT
  Age: 59 Year
  Sex: Female

DRUGS (1)
  1. BARACLUDE [Suspect]
     Indication: HEPATITIS B
     Dosage: DURATION: ONE AND A HALF YEARS
     Route: 048

REACTIONS (1)
  - BLOOD URINE [None]
